FAERS Safety Report 7525587-1 (Version None)
Quarter: 2011Q2

REPORT INFORMATION
  Report Type: 
  Country: None (occurrence: None)
  Receive Date: 20110606
  Receipt Date: 20110523
  Transmission Date: 20111010
  Serious: Yes (Other)
  Sender: FDA-Public Use
  Company Number: PHHY2011DE45124

PATIENT
  Age: 69 Year
  Sex: Male

DRUGS (5)
  1. GLEEVEC [Suspect]
     Indication: CHRONIC MYELOID LEUKAEMIA
     Dosage: 400 MG, QD
     Route: 048
     Dates: start: 20020101
  2. TORSEMIDE [Concomitant]
  3. SIMVASTATIN [Concomitant]
  4. ASPIRIN [Concomitant]
     Dosage: 100 MG, UNK
  5. CLOPIDOGREL [Concomitant]

REACTIONS (5)
  - PAIN IN EXTREMITY [None]
  - CONCOMITANT DISEASE AGGRAVATED [None]
  - DIZZINESS [None]
  - ARRHYTHMIA [None]
  - OEDEMA PERIPHERAL [None]
